FAERS Safety Report 8095799-X (Version None)
Quarter: 2012Q1

REPORT INFORMATION
  Report Type: 
  Country: None (occurrence: None)
  Receive Date: 20120129
  Receipt Date: 20111212
  Transmission Date: 20120608
  Serious: No
  Sender: FDA-Public Use
  Company Number: US-ABBOTT-11P-163-0883305-00

PATIENT
  Sex: Female
  Weight: 75.818 kg

DRUGS (3)
  1. HUMIRA [Suspect]
     Indication: RHEUMATOID ARTHRITIS
     Dates: start: 20030101
  2. MULTI-VITAMINS [Concomitant]
     Indication: VITAMIN SUPPLEMENTATION
  3. METAMUCIL-2 [Concomitant]
     Indication: SUPPLEMENTATION THERAPY

REACTIONS (1)
  - TOOTH FRACTURE [None]
